FAERS Safety Report 7399043-8 (Version None)
Quarter: 2011Q1

REPORT INFORMATION
  Report Type: 
  Country: None (occurrence: None)
  Receive Date: 20110328
  Receipt Date: 20110310
  Transmission Date: 20110831
  Serious: Yes (Other)
  Sender: FDA-Public Use
  Company Number: 2009S1006004

PATIENT
  Age: 67 Year
  Sex: Male

DRUGS (16)
  1. ZYRTEC [Concomitant]
  2. RHINOCORT [Concomitant]
  3. NEURONTIN [Concomitant]
  4. BEXTAR /01400702/ [Concomitant]
  5. FLEXERIL [Concomitant]
  6. ALBUTEROL [Concomitant]
  7. HYZAAR /01284801/ [Concomitant]
  8. PREVACID [Concomitant]
  9. LORTAB [Concomitant]
  10. GLIPIZIDE [Concomitant]
  11. BENICAR [Concomitant]
  12. ANUSOL HC [Concomitant]
  13. XANAX [Concomitant]
  14. PHOSPHOSODA FLAVOR NOT SPECIFIED [Suspect]
     Indication: COLONOSCOPY
     Dosage: 45 ML; BID; PO
     Route: 048
     Dates: start: 20041109, end: 20041109
  15. MALXALT /01406501/ [Concomitant]
  16. ACTOS [Concomitant]

REACTIONS (3)
  - NEPHROGENIC ANAEMIA [None]
  - NEPHROSCLEROSIS [None]
  - RENAL FAILURE CHRONIC [None]
